FAERS Safety Report 16162859 (Version 1)
Quarter: 2019Q2

REPORT INFORMATION
  Report Type: Spontaneous
  Country: US (occurrence: US)
  Receive Date: 20190405
  Receipt Date: 20190405
  Transmission Date: 20190711
  Serious: No
  Sender: FDA-Public Use
  Company Number: US-PFIZER INC-2018506933

PATIENT
  Age: 44 Year
  Sex: Female
  Weight: 81.65 kg

DRUGS (2)
  1. GENOTROPIN [Suspect]
     Active Substance: SOMATROPIN
     Dosage: 0.2 MG, DAILY
     Dates: end: 201811
  2. GENOTROPIN [Suspect]
     Active Substance: SOMATROPIN
     Indication: BLOOD GROWTH HORMONE ABNORMAL
     Dosage: ABOUT 3 YEARS AGO

REACTIONS (7)
  - Arthralgia [Unknown]
  - Weight increased [Unknown]
  - Pain [Unknown]
  - Depression [Unknown]
  - Hypoaesthesia [Unknown]
  - Insulin-like growth factor decreased [Not Recovered/Not Resolved]
  - Insomnia [Unknown]
